FAERS Safety Report 4620238-8 (Version None)
Quarter: 2005Q1

REPORT INFORMATION
  Report Type: 
  Country: None (occurrence: None)
  Receive Date: 20050322
  Receipt Date: 20050322
  Transmission Date: 20050727
  Serious: Yes (Life-Threatening, Hospitalization)
  Sender: FDA-Public Use
  Company Number: None

PATIENT
  Age: 23 Year
  Sex: Male
  Weight: 88.4514 kg

DRUGS (2)
  1. E.E.S. 400 [Suspect]
     Indication: RESPIRATORY TRACT INFECTION
     Dosage: 1 3X A DAY
     Dates: start: 20050307, end: 20050310
  2. ALLEGRA D 24 HOUR [Suspect]
     Indication: RESPIRATORY TRACT CONGESTION
     Dosage: 1 A DAY
     Dates: start: 20050307, end: 20050309

REACTIONS (2)
  - CHEST PAIN [None]
  - DRUG INTERACTION [None]
